FAERS Safety Report 9993021 (Version 2)
Quarter: 2014Q1

REPORT INFORMATION
  Report Type: Report from Study
  Country: US (occurrence: US)
  Receive Date: 20140310
  Receipt Date: 20140310
  Transmission Date: 20141002
  Serious: No
  Sender: FDA-Public Use
  Company Number: US-ABBVIE-13P-163-1161084-00

PATIENT
  Age: 22 Year
  Sex: 0

DRUGS (3)
  1. LUPRON DEPOT [Suspect]
     Indication: ENDOMETRIOSIS
     Dates: start: 20131015
  2. LUPRON DEPOT [Suspect]
     Indication: UTERINE LEIOMYOMA
  3. LUPRON DEPOT [Suspect]
     Indication: POLYCYSTIC OVARIES

REACTIONS (3)
  - Menorrhagia [Recovered/Resolved]
  - Menstrual disorder [Not Recovered/Not Resolved]
  - Pelvic pain [Not Recovered/Not Resolved]
